FAERS Safety Report 4809969-4 (Version None)
Quarter: 2005Q4

REPORT INFORMATION
  Report Type: 
  Country: None (occurrence: None)
  Receive Date: 20051024
  Receipt Date: 20051024
  Transmission Date: 20060501
  Serious: Yes (Life-Threatening)
  Sender: FDA-Public Use
  Company Number: None

PATIENT
  Sex: Male

DRUGS (2)
  1. LOTREL [Suspect]
     Indication: CARDIAC DISORDER
     Dosage: 1 CAPSULE   DAILY   PO
     Route: 048
     Dates: start: 20050714, end: 20050902
  2. LOTREL [Suspect]
     Indication: HYPERTENSION
     Dosage: 1 CAPSULE   DAILY   PO
     Route: 048
     Dates: start: 20050714, end: 20050902

REACTIONS (3)
  - COUGH [None]
  - DYSPNOEA [None]
  - RETCHING [None]
